FAERS Safety Report 14299001 (Version 1)
Quarter: 2017Q4

REPORT INFORMATION
  Report Type: Spontaneous
  Country: US (occurrence: US)
  Receive Date: 20171217
  Receipt Date: 20171217
  Transmission Date: 20180321
  Serious: Yes (Disabling, Other)
  Sender: FDA-Public Use
  Company Number: None

PATIENT
  Age: 57 Year
  Sex: Female

DRUGS (4)
  1. WELLBUTRIN [Concomitant]
     Active Substance: BUPROPION HYDROCHLORIDE
  2. CYMBALTA [Concomitant]
     Active Substance: DULOXETINE HYDROCHLORIDE
  3. BUPROPRION XL [Suspect]
     Active Substance: BUPROPION
     Indication: DEPRESSION
  4. LITHIUM. [Concomitant]
     Active Substance: LITHIUM

REACTIONS (3)
  - Movement disorder [None]
  - Sleep disorder [None]
  - Restless legs syndrome [None]
